FAERS Safety Report 18083495 (Version 2)
Quarter: 2020Q4

REPORT INFORMATION
  Report Type: Report from Study
  Country: JP (occurrence: JP)
  Receive Date: 20200729
  Receipt Date: 20201116
  Transmission Date: 20210113
  Serious: Yes (Hospitalization)
  Sender: FDA-Public Use
  Company Number: JP-TAKEDA-2020TJP015314

PATIENT
  Age: 84 Year
  Sex: Male

DRUGS (25)
  1. CLARITHROMYCIN. [Concomitant]
     Active Substance: CLARITHROMYCIN
     Dosage: UNK
     Dates: start: 20180207
  2. DIART [Suspect]
     Active Substance: AZOSEMIDE
     Indication: CARDIAC FAILURE
     Dosage: 30 MILLIGRAM
     Route: 048
     Dates: start: 20160517
  3. DIART [Suspect]
     Active Substance: AZOSEMIDE
     Dosage: 30 MILLIGRAM
     Route: 048
     Dates: start: 20200514
  4. FEBURIC [Concomitant]
     Active Substance: FEBUXOSTAT
     Dosage: UNK
     Dates: start: 20161210
  5. LIVALO [Concomitant]
     Active Substance: PITAVASTATIN CALCIUM
     Dosage: UNK
     Dates: start: 20171013
  6. URIEF [Concomitant]
     Active Substance: SILODOSIN
     Dosage: UNK
     Dates: start: 20170925
  7. TENELIA [Concomitant]
     Active Substance: TENELIGLIPTIN
     Dosage: UNK
     Dates: start: 20200513
  8. ALOGLIPTIN. [Suspect]
     Active Substance: ALOGLIPTIN
     Indication: DIABETES MELLITUS
     Dosage: 25 MILLIGRAM
     Route: 048
     Dates: start: 20120831
  9. GLIMEPIRIDE. [Suspect]
     Active Substance: GLIMEPIRIDE
     Indication: DIABETES MELLITUS
     Dosage: 0.5 MILLIGRAM
     Route: 048
     Dates: start: 20140328
  10. NICORANDIL [Concomitant]
     Active Substance: NICORANDIL
     Dosage: UNK
     Dates: start: 20150123
  11. CANAGLU [Concomitant]
     Active Substance: CANAGLIFLOZIN
     Dosage: UNK
     Dates: start: 20200514
  12. CONIEL [Concomitant]
     Active Substance: BENIDIPINE HYDROCHLORIDE
     Dosage: UNK
     Dates: start: 20170623
  13. NEXIUM [Concomitant]
     Active Substance: ESOMEPRAZOLE MAGNESIUM
     Dosage: UNK
     Dates: start: 20151002
  14. LOXOPROFEN NA [Concomitant]
     Active Substance: LOXOPROFEN SODIUM
     Dosage: UNK
     Dates: start: 20121109
  15. ALLERMIST [Concomitant]
     Active Substance: FLUTICASONE FUROATE
     Dosage: UNK
     Dates: start: 20160803
  16. COMPLAVIN [Concomitant]
     Active Substance: ASPIRIN\CLOPIDOGREL BISULFATE
     Dosage: UNK
     Dates: start: 20140725
  17. SENNOSIDE A+B [Concomitant]
     Active Substance: SENNOSIDES A AND B
     Dosage: UNK
     Dates: start: 20150911
  18. TOCOPHERYL NICOTINATE [Concomitant]
     Active Substance: TOCOPHERYL NICOTINATE, D-.ALPHA.
     Dosage: UNK
     Dates: start: 20051102
  19. CYMBALTA [Concomitant]
     Active Substance: DULOXETINE HYDROCHLORIDE
     Dosage: UNK
     Dates: start: 20161215
  20. CALONAL [Concomitant]
     Active Substance: ACETAMINOPHEN
     Dosage: UNK
     Dates: start: 20200423
  21. MONTELUKAST                        /01362602/ [Concomitant]
     Active Substance: MONTELUKAST SODIUM
     Dosage: UNK
     Dates: start: 20170816
  22. SPIRONOLACTONE. [Suspect]
     Active Substance: SPIRONOLACTONE
     Indication: CARDIAC FAILURE
     Dosage: 25 MILLIGRAM
     Route: 048
     Dates: start: 20160524
  23. ARTIST [Concomitant]
     Active Substance: CARVEDILOL
     Dosage: UNK
     Dates: start: 20160610
  24. AMIODARONE HYDROCHLORIDE. [Concomitant]
     Active Substance: AMIODARONE HYDROCHLORIDE
     Dosage: UNK
     Dates: start: 20200220
  25. CARBOCISTEINE [Concomitant]
     Active Substance: CARBOCYSTEINE
     Dosage: UNK
     Dates: start: 20180207

REACTIONS (2)
  - Decreased appetite [Not Recovered/Not Resolved]
  - Dehydration [Not Recovered/Not Resolved]

NARRATIVE: CASE EVENT DATE: 20200507
